FAERS Safety Report 10612864 (Version 1)
Quarter: 2014Q4

REPORT INFORMATION
  Report Type: Spontaneous
  Country: FR (occurrence: FR)
  Receive Date: 20141127
  Receipt Date: 20141127
  Transmission Date: 20150529
  Serious: Yes (Hospitalization)
  Sender: FDA-Public Use
  Company Number: FR-ASTRAZENECA-2014SE89918

PATIENT
  Age: 3409 Week
  Sex: Male

DRUGS (10)
  1. ZYPREXA [Concomitant]
     Active Substance: OLANZAPINE
     Dosage: 10 MG EVERY DAY, DECREASING DOSE FOR A POSSIBLE DISCONTINUATION
     Route: 048
     Dates: start: 201306
  2. CELIPROLOL [Concomitant]
     Active Substance: CELIPROLOL
     Route: 048
  3. SEVIKAR [Concomitant]
     Active Substance: AMLODIPINE BESYLATE\OLMESARTAN MEDOXOMIL
     Dosage: 1 DF EVERY DAY, STRENGTH : 40 MG / 10 MG
     Route: 048
  4. XANAX [Concomitant]
     Active Substance: ALPRAZOLAM
     Route: 048
     Dates: start: 201306
  5. ALLOPURINOL. [Concomitant]
     Active Substance: ALLOPURINOL
     Route: 048
  6. SIMVASTATINE [Concomitant]
     Active Substance: SIMVASTATIN
     Route: 048
  7. XEROQUEL [Suspect]
     Active Substance: QUETIAPINE FUMARATE
     Dosage: DOSE PROGRESSIVELY INCREASED TO REACH 300 MG PER DAY ; FORMULATION : TABLET SR
     Route: 048
     Dates: start: 201403
  8. ACARBOSE. [Concomitant]
     Active Substance: ACARBOSE
     Route: 048
  9. METFORMINE [Concomitant]
     Active Substance: METFORMIN HYDROCHLORIDE
     Route: 048
  10. XEROQUEL [Suspect]
     Active Substance: QUETIAPINE FUMARATE
     Route: 048
     Dates: start: 201306, end: 201403

REACTIONS (2)
  - Hypokalaemia [Recovered/Resolved]
  - Hypernatraemia [Recovered/Resolved]

NARRATIVE: CASE EVENT DATE: 20140623
